FAERS Safety Report 7960002-5 (Version None)
Quarter: 2011Q4

REPORT INFORMATION
  Report Type: 
  Country: None (occurrence: None)
  Receive Date: 20111206
  Receipt Date: 20111124
  Transmission Date: 20120403
  Serious: Yes (Hospitalization, Disabling, Other)
  Sender: FDA-Public Use
  Company Number: PHHY2011CA79645

PATIENT
  Sex: Female

DRUGS (4)
  1. SEROQUEL [Concomitant]
     Dosage: 400 MG, DAILY
  2. CLOZARIL [Suspect]
     Indication: SCHIZOPHRENIA
     Dosage: 200 MG/ DAY
     Route: 048
     Dates: start: 20080425, end: 20110902
  3. LUVOX [Concomitant]
     Dosage: 50 MG, QHS
  4. CLONAZEPAM [Concomitant]
     Dosage: 0.5 UKN, BID

REACTIONS (3)
  - HYPOTENSION [None]
  - SYNCOPE [None]
  - CARDIAC DISORDER [None]
